FAERS Safety Report 24268058 (Version 3)
Quarter: 2024Q3

REPORT INFORMATION
  Report Type: Spontaneous
  Country: AT (occurrence: AT)
  Receive Date: 20240830
  Receipt Date: 20240927
  Transmission Date: 20241017
  Serious: Yes (Death, Other)
  Sender: SERVIER
  Company Number: AT-SERVIER-S24009919

PATIENT

DRUGS (4)
  1. TIBSOVO [Suspect]
     Active Substance: IVOSIDENIB
     Indication: Acute myeloid leukaemia
     Dosage: 500 MG, QD
     Route: 048
     Dates: start: 202405, end: 202406
  2. VIROPEL [Concomitant]
     Indication: Prophylaxis
     Dosage: 500 MG, BID
     Route: 048
  3. Lidaprim [Concomitant]
     Indication: Prophylaxis
     Dosage: UNK, 3X A WEEK
     Route: 048
  4. CLOPIDOGREL [Concomitant]
     Active Substance: CLOPIDOGREL BISULFATE
     Indication: Product used for unknown indication
     Dosage: 75 MG
     Route: 065

REACTIONS (3)
  - Infection [Fatal]
  - Pancytopenia [Not Recovered/Not Resolved]
  - Vasculitis necrotising [Recovering/Resolving]

NARRATIVE: CASE EVENT DATE: 20240101
